FAERS Safety Report 9478258 (Version 1)
Quarter: 2013Q3

REPORT INFORMATION
  Report Type: Spontaneous
  Country: US (occurrence: US)
  Receive Date: 20130827
  Receipt Date: 20130827
  Transmission Date: 20140515
  Serious: Yes (Other)
  Sender: FDA-Public Use
  Company Number: US-JNJFOC-20130809259

PATIENT
  Sex: Male
  Weight: 90.72 kg

DRUGS (4)
  1. DURAGESIC [Suspect]
     Indication: NEURALGIA
     Dosage: 100 UG/HR PLUS 50 UG/HR
     Route: 062
     Dates: start: 2008, end: 2008
  2. DURAGESIC [Suspect]
     Indication: NEURALGIA
     Dosage: 100 UG/HR PLUS 50 UG/HR
     Route: 062
     Dates: start: 1998, end: 2004
  3. HYDROMORPHONE [Concomitant]
     Indication: PAIN
     Route: 048
     Dates: start: 2013
  4. MORPHINE [Concomitant]
     Indication: BREAKTHROUGH PAIN
     Route: 048
     Dates: start: 2013

REACTIONS (5)
  - Neuropathy peripheral [Not Recovered/Not Resolved]
  - Multiple sclerosis [Unknown]
  - Lung carcinoma cell type unspecified stage IV [Unknown]
  - Gallbladder cancer stage IV [Unknown]
  - Product quality issue [Unknown]
